FAERS Safety Report 5899182-4 (Version None)
Quarter: 2008Q3

REPORT INFORMATION
  Report Type: 
  Country: None (occurrence: None)
  Receive Date: 20080902
  Receipt Date: 20070823
  Transmission Date: 20090109
  Serious: Yes (Hospitalization)
  Sender: FDA-Public Use
  Company Number: KADN20070080

PATIENT
  Age: 75 Year
  Sex: Female
  Weight: 83.9154 kg

DRUGS (7)
  1. KADIAN [Suspect]
     Indication: BACK PAIN
     Dosage: 1 CAP BID, PER ORAL
     Route: 048
     Dates: start: 20070711, end: 20070725
  2. LOTREL [Concomitant]
  3. DEMADEX [Concomitant]
  4. CLONAZEPAM [Concomitant]
  5. ATARAX [Concomitant]
  6. FOSAMAX [Concomitant]
  7. TRAMADOL HCL [Concomitant]

REACTIONS (1)
  - DRUG WITHDRAWAL SYNDROME [None]
